FAERS Safety Report 19218361 (Version 1)
Quarter: 2021Q2

REPORT INFORMATION
  Report Type: Spontaneous
  Country: BR (occurrence: BR)
  Receive Date: 20210505
  Receipt Date: 20210505
  Transmission Date: 20210717
  Serious: Yes (Life-Threatening, Hospitalization, Other)
  Sender: FDA-Public Use
  Company Number: BR-AXELLIA-003784

PATIENT
  Age: 67 Year
  Sex: Female

DRUGS (2)
  1. POLYMYXIN B. [Suspect]
     Active Substance: POLYMYXIN B
     Indication: PSEUDOMONAS INFECTION
  2. ESCITALOPRAM [Concomitant]
     Active Substance: ESCITALOPRAM OXALATE
     Indication: DEPRESSION

REACTIONS (12)
  - Dyspnoea [Recovering/Resolving]
  - Dysphagia [Recovering/Resolving]
  - Musculoskeletal stiffness [Recovering/Resolving]
  - Metabolic alkalosis [Recovering/Resolving]
  - Paraesthesia [Recovering/Resolving]
  - Anxiety [Recovering/Resolving]
  - Tremor [Recovering/Resolving]
  - Hypokalaemia [Recovered/Resolved]
  - Hypomagnesaemia [Recovered/Resolved]
  - Insomnia [Recovering/Resolving]
  - Hypocalcaemia [Recovered/Resolved]
  - Acute kidney injury [Recovered/Resolved]
